FAERS Safety Report 22194591 (Version 1)
Quarter: 2023Q2

REPORT INFORMATION
  Report Type: Other
  Country: US (occurrence: US)
  Receive Date: 20230411
  Receipt Date: 20230411
  Transmission Date: 20230722
  Serious: Yes (Death)
  Sender: FDA-Public Use
  Company Number: US-ALVOGEN-2023089602

PATIENT
  Age: 17 Year
  Sex: Female

DRUGS (1)
  1. FENTANYL [Suspect]
     Active Substance: FENTANYL
     Indication: Product used for unknown indication
     Route: 065

REACTIONS (5)
  - Death [Fatal]
  - Cardiac arrest [Fatal]
  - Brain oedema [Fatal]
  - Depressed level of consciousness [Fatal]
  - Respiratory depression [Fatal]
